FAERS Safety Report 21860832 (Version 1)
Quarter: 2023Q1

REPORT INFORMATION
  Report Type: Spontaneous
  Country: US (occurrence: US)
  Receive Date: 20230113
  Receipt Date: 20230113
  Transmission Date: 20230417
  Serious: No
  Sender: FDA-Public Use
  Company Number: US-NOVOPROD-988776

PATIENT
  Sex: Male

DRUGS (2)
  1. WEGOVY [Suspect]
     Active Substance: SEMAGLUTIDE
     Indication: Product used for unknown indication
     Dosage: UNK
     Route: 058
  2. WEGOVY [Suspect]
     Active Substance: SEMAGLUTIDE
     Dosage: 1.7MG
     Route: 058

REACTIONS (5)
  - Decreased appetite [Unknown]
  - Bowel movement irregularity [Unknown]
  - Eructation [Unknown]
  - Nausea [Unknown]
  - Inappropriate schedule of product administration [Not Recovered/Not Resolved]
